FAERS Safety Report 10012742 (Version 1)
Quarter: 2014Q1

REPORT INFORMATION
  Report Type: Spontaneous
  Country: US (occurrence: None)
  Receive Date: 20140304
  Receipt Date: 20140304
  Transmission Date: 20141002
  Serious: Yes (Death, Other)
  Sender: FDA-Public Use
  Company Number: RB-58614-2013

PATIENT
  Age: 14 Month
  Sex: Male

DRUGS (1)
  1. SUBOXONE [Suspect]
     Indication: ACCIDENTAL EXPOSURE TO PRODUCT BY CHILD
     Dosage: (DOSING DETAILS UNKNOWN ORAL)
     Route: 048
     Dates: start: 201009, end: 201009

REACTIONS (3)
  - Accidental exposure to product by child [None]
  - Toxicity to various agents [None]
  - Restlessness [None]
